FAERS Safety Report 11982772 (Version 1)
Quarter: 2016Q1

REPORT INFORMATION
  Report Type: Spontaneous
  Country: AT (occurrence: AT)
  Receive Date: 20160201
  Receipt Date: 20160201
  Transmission Date: 20160526
  Serious: Yes (Hospitalization, Other)
  Sender: FDA-Public Use
  Company Number: AT-TEVA-628295ISR

PATIENT
  Age: 45 Year
  Sex: Female

DRUGS (8)
  1. SPIRONOLACTON [Suspect]
     Active Substance: SPIRONOLACTONE
     Dates: start: 201206
  2. ASPIRIN. [Suspect]
     Active Substance: ASPIRIN
     Route: 065
  3. RILMENIDIN [Suspect]
     Active Substance: RILMENIDINE
  4. NICORANDIL [Suspect]
     Active Substance: NICORANDIL
     Dates: start: 201205
  5. MINOXIDIL. [Suspect]
     Active Substance: MINOXIDIL
     Dates: start: 2012
  6. HYDRALAZINE [Suspect]
     Active Substance: HYDRALAZINE HYDROCHLORIDE
  7. DOXAZOSIN [Suspect]
     Active Substance: DOXAZOSIN\DOXAZOSIN MESYLATE
     Dates: start: 201309
  8. CLONIDIN [Suspect]
     Active Substance: CLONIDINE
     Dates: start: 201206

REACTIONS (7)
  - Hypertension [Not Recovered/Not Resolved]
  - Syncope [Unknown]
  - Cerebral infarction [Recovered/Resolved]
  - Facial nerve disorder [Recovered/Resolved]
  - Coronary artery disease [Recovered/Resolved]
  - Hypertensive crisis [Recovered/Resolved]
  - Aphasia [Recovered/Resolved]

NARRATIVE: CASE EVENT DATE: 2012
